FAERS Safety Report 25427579 (Version 1)
Quarter: 2025Q2

REPORT INFORMATION
  Report Type: Report from Study
  Country: ES (occurrence: None)
  Receive Date: 20250612
  Receipt Date: 20250612
  Transmission Date: 20250717
  Serious: Yes (Other)
  Sender: ENCUBE ETHICALS
  Company Number: ES-Encube-001931

PATIENT
  Age: 35 Year
  Sex: Male

DRUGS (2)
  1. ESTRADIOL [Suspect]
     Active Substance: ESTRADIOL
     Indication: Transgender hormonal therapy
     Route: 062
  2. CYPROTERONE [Suspect]
     Active Substance: CYPROTERONE
     Indication: Transgender hormonal therapy

REACTIONS (5)
  - Off label use [Unknown]
  - Visual impairment [Recovering/Resolving]
  - Optic atrophy [Recovering/Resolving]
  - Headache [Recovering/Resolving]
  - Meningioma benign [Recovering/Resolving]
